FAERS Safety Report 23237584 (Version 2)
Quarter: 2024Q1

REPORT INFORMATION
  Report Type: Report from Study
  Country: FR (occurrence: FR)
  Receive Date: 20231128
  Receipt Date: 20240214
  Transmission Date: 20240410
  Serious: Yes (Hospitalization, Other)
  Sender: FDA-Public Use
  Company Number: FR-RECORDATI-2022002062

PATIENT
  Age: 67 Year
  Sex: Male
  Weight: 115 kg

DRUGS (22)
  1. OXYCODONE HYDROCHLORIDE [Suspect]
     Active Substance: OXYCODONE HYDROCHLORIDE
     Indication: Cancer pain
     Dosage: 40 MILLIGRAM, QD
     Route: 042
     Dates: start: 20220506, end: 20220514
  2. OXYCODONE HYDROCHLORIDE [Suspect]
     Active Substance: OXYCODONE HYDROCHLORIDE
     Dosage: 5 MILLIGRAM, QD
     Route: 042
     Dates: start: 20220512, end: 20220514
  3. MORPHINE SULFATE [Suspect]
     Active Substance: MORPHINE SULFATE
     Indication: Cancer pain
     Dosage: UNK
     Route: 042
     Dates: start: 20220504, end: 20220508
  4. MORPHINE SULFATE [Suspect]
     Active Substance: MORPHINE SULFATE
     Dosage: 10 MILLIGRAM, BID
     Route: 042
     Dates: start: 20220513, end: 20230514
  5. METHADONE HYDROCHLORIDE [Suspect]
     Active Substance: METHADONE HYDROCHLORIDE
     Indication: Cancer pain
     Dosage: 60 MILLIGRAM, QD
     Route: 065
     Dates: start: 20220523, end: 20220523
  6. METHADONE HYDROCHLORIDE [Suspect]
     Active Substance: METHADONE HYDROCHLORIDE
     Dosage: 50 MILLIGRAM, QD
     Route: 065
     Dates: start: 20220521, end: 20220521
  7. METHADONE HYDROCHLORIDE [Suspect]
     Active Substance: METHADONE HYDROCHLORIDE
     Dosage: 50 MILLIGRAM, QD
     Route: 065
     Dates: start: 20220524, end: 20220524
  8. METHADONE HYDROCHLORIDE [Suspect]
     Active Substance: METHADONE HYDROCHLORIDE
     Dosage: 25 MILLIGRAM, QD
     Route: 065
     Dates: start: 20220514, end: 20220515
  9. METHADONE HYDROCHLORIDE [Suspect]
     Active Substance: METHADONE HYDROCHLORIDE
     Dosage: 60 MILLIGRAM, QD
     Route: 065
     Dates: start: 20220527, end: 20220527
  10. METHADONE HYDROCHLORIDE [Suspect]
     Active Substance: METHADONE HYDROCHLORIDE
     Dosage: 40 MILLIGRAM, QD
     Route: 065
     Dates: start: 20220520, end: 20220520
  11. METHADONE HYDROCHLORIDE [Suspect]
     Active Substance: METHADONE HYDROCHLORIDE
     Dosage: 90 MILLIGRAM, QD
     Route: 065
     Dates: start: 20220526, end: 20220526
  12. METHADONE HYDROCHLORIDE [Suspect]
     Active Substance: METHADONE HYDROCHLORIDE
     Dosage: 60 MILLIGRAM, QD
     Route: 065
     Dates: start: 20220525, end: 20220525
  13. METHADONE HYDROCHLORIDE [Suspect]
     Active Substance: METHADONE HYDROCHLORIDE
     Dosage: 30 MILLIGRAM, QD
     Route: 065
     Dates: start: 20220518, end: 20220519
  14. METHADONE HYDROCHLORIDE [Suspect]
     Active Substance: METHADONE HYDROCHLORIDE
     Dosage: 40 MILLIGRAM, QD
     Route: 065
     Dates: start: 20220522, end: 20220522
  15. METHADONE HYDROCHLORIDE [Suspect]
     Active Substance: METHADONE HYDROCHLORIDE
     Dosage: 25 MILLIGRAM, QD
     Route: 065
     Dates: start: 20220517, end: 20220517
  16. METHADONE HYDROCHLORIDE [Suspect]
     Active Substance: METHADONE HYDROCHLORIDE
     Dosage: 20 MILLIGRAM, QD
     Route: 065
     Dates: start: 20220516, end: 20220516
  17. METHADONE HYDROCHLORIDE [Suspect]
     Active Substance: METHADONE HYDROCHLORIDE
     Dosage: 75 MG, QD
     Route: 065
     Dates: start: 20220528, end: 20220528
  18. METHADONE HYDROCHLORIDE [Suspect]
     Active Substance: METHADONE HYDROCHLORIDE
     Dosage: 15 MILLIGRAM, QD
     Route: 065
     Dates: start: 20220512
  19. METHADONE HYDROCHLORIDE [Suspect]
     Active Substance: METHADONE HYDROCHLORIDE
     Dosage: 60 MILLIGRAM, QD
     Route: 065
     Dates: start: 20220529, end: 20220601
  20. METHADONE HYDROCHLORIDE [Suspect]
     Active Substance: METHADONE HYDROCHLORIDE
     Dosage: 45 MG, QD
     Route: 065
     Dates: start: 20220602
  21. MORPHINE [Concomitant]
     Active Substance: MORPHINE
     Indication: Cancer pain
     Dosage: UNK
     Route: 042
     Dates: start: 20220504, end: 20220508
  22. MORPHINE [Concomitant]
     Active Substance: MORPHINE
     Dosage: 10 MILLIGRAM, BID
     Route: 042
     Dates: start: 20220513, end: 20220514

REACTIONS (6)
  - Radius fracture [Not Recovered/Not Resolved]
  - Hallucination [Recovered/Resolved]
  - Myoclonus [Recovered/Resolved]
  - Constipation [Not Recovered/Not Resolved]
  - Somnolence [Recovered/Resolved]
  - Somnolence [Recovered/Resolved]

NARRATIVE: CASE EVENT DATE: 20220502
